FAERS Safety Report 5810938-6 (Version None)
Quarter: 2008Q3

REPORT INFORMATION
  Report Type: 
  Country: None (occurrence: None)
  Receive Date: 20080716
  Receipt Date: 20080707
  Transmission Date: 20090109
  Serious: Yes (Hospitalization)
  Sender: FDA-Public Use
  Company Number: PHHY2008MX13565

PATIENT
  Age: 69 Year
  Sex: Male

DRUGS (1)
  1. EXFORGE [Suspect]
     Indication: HYPERTENSION
     Dosage: 160/5 MG DAILY
     Route: 048
     Dates: start: 20080501

REACTIONS (1)
  - BLOOD GLUCOSE FLUCTUATION [None]
